FAERS Safety Report 8817350 (Version 4)
Quarter: 2014Q1

REPORT INFORMATION
  Report Type: Report from Study
  Country: US (occurrence: US)
  Receive Date: 20121004
  Receipt Date: 20140327
  Transmission Date: 20141002
  Serious: Yes (Hospitalization)
  Sender: FDA-Public Use
  Company Number: US-009507513-1209USA011270

PATIENT
  Age: 49 Year
  Sex: Male
  Weight: 102.7 kg

DRUGS (3)
  1. ASENAPINE MALEATE-BIPOLAR DISORDER [Suspect]
     Indication: BIPOLAR DISORDER
     Dosage: 10 MG, BID
     Route: 060
     Dates: start: 20120914, end: 20120920
  2. ATIVAN [Concomitant]
     Indication: ANXIETY
     Dosage: 2 MG, PRN
     Route: 048
     Dates: start: 20120909
  3. IBUPROFEN [Concomitant]
     Indication: MUSCLE CONTRACTURE
     Dosage: 800 MG, PRN
     Route: 048
     Dates: start: 20120908

REACTIONS (1)
  - Suicide attempt [Recovered/Resolved]
